FAERS Safety Report 8136994-0 (Version None)
Quarter: 2012Q1

REPORT INFORMATION
  Report Type: 
  Country: None (occurrence: None)
  Receive Date: 20120215
  Receipt Date: 20120206
  Transmission Date: 20120608
  Serious: Yes (Other)
  Sender: FDA-Public Use
  Company Number: BE-AMGEN-BELSP2012006717

PATIENT
  Age: 70 Year
  Sex: Female

DRUGS (8)
  1. MOTILIUM                           /00498201/ [Concomitant]
     Dosage: UNK
     Route: 048
  2. MAGNESIUM [Concomitant]
     Dosage: UNK
     Route: 048
  3. MICARDIS [Concomitant]
     Dosage: UNK
     Route: 048
  4. SIMVASTATIN [Concomitant]
     Dosage: UNK
     Route: 048
  5. ALDACTAZINE [Concomitant]
     Dosage: UNK
     Route: 048
  6. OSTEOVIT                           /00107901/ [Concomitant]
     Dosage: UNK
     Route: 048
  7. ZOLPIDEM [Concomitant]
     Dosage: UNK
     Route: 048
  8. ENBREL [Suspect]
     Indication: PSORIASIS
     Dosage: 50 MG, WEEKLY
     Route: 058
     Dates: start: 20110420, end: 20111215

REACTIONS (1)
  - BREAST CANCER [None]
